FAERS Safety Report 8972759 (Version 2)
Quarter: 2013Q4

REPORT INFORMATION
  Report Type: Spontaneous
  Country: US (occurrence: US)
  Receive Date: 20121219
  Receipt Date: 20131112
  Transmission Date: 20140711
  Serious: Yes (Hospitalization)
  Sender: FDA-Public Use
  Company Number: US-BAYER-2012-131739

PATIENT
  Age: 19 Year
  Sex: Female

DRUGS (3)
  1. YAZ [Suspect]
     Indication: CONTRACEPTION
     Dosage: UNK
     Dates: start: 2009
  2. PRILOSEC [Concomitant]
  3. PERCOCET [Concomitant]

REACTIONS (5)
  - Cholecystectomy [None]
  - Cholecystitis acute [None]
  - Injury [None]
  - Pain [None]
  - Pain [None]
